FAERS Safety Report 24984402 (Version 1)
Quarter: 2025Q1

REPORT INFORMATION
  Report Type: Spontaneous
  Country: GB (occurrence: GB)
  Receive Date: 20250219
  Receipt Date: 20250219
  Transmission Date: 20250409
  Serious: Yes (Other)
  Sender: ALKEM
  Company Number: GB-ALKEM LABORATORIES LIMITED-GB-ALKEM-2025-01404

PATIENT
  Age: 40 Year
  Sex: Female
  Weight: 63 kg

DRUGS (4)
  1. QUETIAPINE FUMARATE [Suspect]
     Active Substance: QUETIAPINE FUMARATE
     Indication: Product used for unknown indication
     Route: 065
  2. QUETIAPINE FUMARATE [Suspect]
     Active Substance: QUETIAPINE FUMARATE
     Dosage: 900 MILLIGRAM, QD (INCREASED DOSE)
     Route: 065
  3. ATIVAN [Suspect]
     Active Substance: LORAZEPAM
     Indication: Suicide attempt
     Route: 065
  4. RISPERDAL [Concomitant]
     Active Substance: RISPERIDONE
     Indication: Product used for unknown indication
     Route: 065

REACTIONS (31)
  - Cardiac failure [Unknown]
  - Seizure [Unknown]
  - Suicide attempt [Unknown]
  - Coma [Unknown]
  - Intentional overdose [Unknown]
  - Aphasia [Unknown]
  - Gait disturbance [Unknown]
  - Food intolerance [Unknown]
  - Eating disorder [Unknown]
  - Vitamin B12 deficiency [Unknown]
  - Hyposomnia [Unknown]
  - Psychotic disorder [Unknown]
  - Decreased appetite [Unknown]
  - Motion sickness [Unknown]
  - Brain fog [Unknown]
  - Tooth injury [Unknown]
  - Humerus fracture [Unknown]
  - Malaise [Unknown]
  - Restless legs syndrome [Unknown]
  - Speech disorder [Unknown]
  - Fatigue [Unknown]
  - Vomiting [Unknown]
  - Dyspepsia [Unknown]
  - Orthostatic hypotension [Unknown]
  - Hypertension [Unknown]
  - Thinking abnormal [Unknown]
  - Hypersomnia [Unknown]
  - Nausea [Unknown]
  - Abdominal pain upper [Unknown]
  - Off label use [Unknown]
  - Exposure during pregnancy [Unknown]
